FAERS Safety Report 18502643 (Version 7)
Quarter: 2024Q3

REPORT INFORMATION
  Report Type: Report from Study
  Country: BR (occurrence: BR)
  Receive Date: 20201113
  Receipt Date: 20240827
  Transmission Date: 20241017
  Serious: Yes (Other)
  Sender: NOVARTIS
  Company Number: PHHY2019BR210764

PATIENT
  Age: 44 Year
  Sex: Female

DRUGS (7)
  1. COSENTYX [Suspect]
     Active Substance: SECUKINUMAB
     Indication: Psoriasis
     Dosage: 300 MG, QW, INJECTION NOS
     Route: 050
     Dates: start: 20190718
  2. COSENTYX [Suspect]
     Active Substance: SECUKINUMAB
     Dosage: 300 MG, INJECTION NOS
     Route: 050
     Dates: start: 201907
  3. COSENTYX [Suspect]
     Active Substance: SECUKINUMAB
     Dosage: 300 MG, QW, INJECTION NOS
     Route: 050
     Dates: start: 20190815
  4. COSENTYX [Suspect]
     Active Substance: SECUKINUMAB
     Dosage: UNK, INJECTION NOS
     Route: 050
     Dates: start: 20201105
  5. COSENTYX [Suspect]
     Active Substance: SECUKINUMAB
     Dosage: 300 MG, INJECTION NOS
     Route: 050
  6. COSENTYX [Suspect]
     Active Substance: SECUKINUMAB
     Dosage: 300 MG, INJECTION NOS
     Route: 050
     Dates: start: 20210810
  7. COSENTYX [Suspect]
     Active Substance: SECUKINUMAB
     Dosage: UNK, INJECTION NOS
     Route: 050
     Dates: end: 202310

REACTIONS (19)
  - COVID-19 [Recovered/Resolved]
  - Deafness unilateral [Not Recovered/Not Resolved]
  - Decreased immune responsiveness [Not Recovered/Not Resolved]
  - Candida infection [Recovered/Resolved]
  - Psoriasis [Not Recovered/Not Resolved]
  - Skin lesion [Not Recovered/Not Resolved]
  - Erythema [Unknown]
  - Ear infection [Recovering/Resolving]
  - Otorrhoea [Recovered/Resolved]
  - Malaise [Recovering/Resolving]
  - Pain [Recovering/Resolving]
  - Quality of life decreased [Unknown]
  - Illness [Unknown]
  - Discomfort [Unknown]
  - COVID-19 [Recovered/Resolved]
  - Urinary tract infection [Recovered/Resolved]
  - Urinary tract infection [Not Recovered/Not Resolved]
  - Nasopharyngitis [Recovering/Resolving]
  - Nasal congestion [Recovering/Resolving]

NARRATIVE: CASE EVENT DATE: 20190827
